FAERS Safety Report 17405979 (Version 1)
Quarter: 2020Q1

REPORT INFORMATION
  Report Type: Spontaneous
  Country: US (occurrence: US)
  Receive Date: 20200212
  Receipt Date: 20200212
  Transmission Date: 20200409
  Serious: No
  Sender: FDA-Public Use
  Company Number: US-ALLERGAN-1903964US

PATIENT
  Sex: Female

DRUGS (1)
  1. TAZAROTENE - BP [Suspect]
     Active Substance: TAZAROTENE
     Indication: PRODUCT USED FOR UNKNOWN INDICATION
     Dosage: 1/3 OF TOP OF A CAP TWO TIMES PER WEEK
     Route: 061

REACTIONS (4)
  - Application site pruritus [Unknown]
  - Emotional distress [Unknown]
  - Application site irritation [Unknown]
  - Application site dermatitis [Unknown]
